FAERS Safety Report 12694814 (Version 1)
Quarter: 2016Q3

REPORT INFORMATION
  Report Type: Report from Study
  Country: US (occurrence: US)
  Receive Date: 20160829
  Receipt Date: 20160829
  Transmission Date: 20161109
  Serious: Yes (Hospitalization, Other)
  Sender: FDA-Public Use
  Company Number: US-ARIAD-2013US002098

PATIENT
  Age: 80 Year
  Sex: Male
  Weight: 91 kg

DRUGS (1)
  1. ICLUSIG [Suspect]
     Active Substance: PONATINIB
     Indication: CHRONIC MYELOID LEUKAEMIA
     Dosage: 45 MG, QD
     Route: 048
     Dates: end: 20130714

REACTIONS (9)
  - Lethargy [Unknown]
  - Dysstasia [Unknown]
  - PO2 decreased [Unknown]
  - Abasia [Unknown]
  - Fall [Unknown]
  - Pulmonary oedema [Unknown]
  - Polyneuropathy [Unknown]
  - Anal incontinence [Unknown]
  - Ill-defined disorder [Unknown]

NARRATIVE: CASE EVENT DATE: 20130714
